FAERS Safety Report 8590698-9 (Version None)
Quarter: 2012Q3

REPORT INFORMATION
  Report Type: 
  Country: None (occurrence: None)
  Receive Date: 20120731
  Receipt Date: 20120718
  Transmission Date: 20120928
  Serious: Yes (Other)
  Sender: FDA-Public Use
  Company Number: MCA-N-12-095

PATIENT
  Age: 82 Year
  Sex: Female

DRUGS (7)
  1. PANTOPRAZOLE [Concomitant]
  2. DONEPEZIL HCL [Concomitant]
  3. LEVOTHYROXINE SODIUM [Concomitant]
  4. TORSEMIDE [Concomitant]
  5. CLONIDINE [Concomitant]
  6. VENLAFAXINE [Suspect]
     Indication: MAJOR DEPRESSION
     Dosage: 75 MG/DAY
  7. QUETIAPINE [Concomitant]

REACTIONS (1)
  - CARDIAC ARREST [None]
